FAERS Safety Report 8936254 (Version 2)
Quarter: 2012Q4

REPORT INFORMATION
  Report Type: Report from Study
  Country: JP (occurrence: JP)
  Receive Date: 20121130
  Receipt Date: 20121213
  Transmission Date: 20130627
  Serious: Yes (Hospitalization)
  Sender: FDA-Public Use
  Company Number: JP-VERTEX PHARMACEUTICAL INC.-2012-025301

PATIENT
  Age: 73 Year
  Sex: Female

DRUGS (6)
  1. VX-950 (TELAPREVIR) [Suspect]
     Indication: CHRONIC HEPATITIS C
     Dosage: 1500 mg, qd
     Route: 048
     Dates: start: 20120820, end: 20121117
  2. REBETOL [Suspect]
     Indication: CHRONIC HEPATITIS C
     Dosage: 400 mg, qd
     Route: 048
     Dates: start: 20120820, end: 20120909
  3. PEGINTRON                          /01543001/ [Suspect]
     Indication: CHRONIC HEPATITIS C
     Dosage: 1.5 ?g/kg, UNK
     Route: 058
     Dates: start: 20120820, end: 20121116
  4. PEGINTRON                          /01543001/ [Suspect]
     Dosage: 1.33 UNK, UNK
     Route: 058
     Dates: start: 20121128
  5. MUCOSTA [Concomitant]
     Dosage: UNK, prn
     Route: 048
     Dates: start: 20120820
  6. LOXONIN [Concomitant]
     Dosage: UNK, prn
     Route: 048
     Dates: start: 20120820

REACTIONS (1)
  - Pleural effusion [Recovered/Resolved]
